FAERS Safety Report 25757190 (Version 3)
Quarter: 2025Q4

REPORT INFORMATION
  Report Type: Report from Study
  Country: JP (occurrence: JP)
  Receive Date: 20250903
  Receipt Date: 20251002
  Transmission Date: 20260118
  Serious: Yes (Hospitalization)
  Sender: ELI LILLY AND COMPANY
  Company Number: JP-ELI_LILLY_AND_COMPANY-JP202508022987

PATIENT
  Age: 75 Year
  Sex: Female
  Weight: 44 kg

DRUGS (2)
  1. KISUNLA [Suspect]
     Active Substance: DONANEMAB-AZBT
     Indication: Cognitive disorder
     Dosage: 700 MG, EVERY 4 WEEKS
     Route: 041
     Dates: start: 20250724, end: 20250822
  2. ALLYDONE [Concomitant]
     Indication: Cognitive disorder
     Route: 062

REACTIONS (1)
  - Cerebral haemorrhage [Unknown]

NARRATIVE: CASE EVENT DATE: 20250809
